FAERS Safety Report 10146032 (Version 3)
Quarter: 2014Q2

REPORT INFORMATION
  Report Type: Report from Study
  Country: AU (occurrence: AU)
  Receive Date: 20140501
  Receipt Date: 20140603
  Transmission Date: 20141212
  Serious: Yes (Hospitalization, Other)
  Sender: FDA-Public Use
  Company Number: PHHY2014AU052523

PATIENT
  Age: 23 Year
  Sex: Male

DRUGS (7)
  1. CLOZARIL [Suspect]
     Indication: SCHIZOPHRENIA
     Dosage: 600 MG, NOCTE
     Dates: start: 20081230, end: 20140424
  2. AMISULPRIDE [Concomitant]
     Indication: SCHIZOPHRENIA
     Dosage: 400 MG, NOCTE
     Route: 048
     Dates: start: 20111011
  3. DULOXETINE [Concomitant]
     Indication: SCHIZOPHRENIA
     Dosage: 60 MG, UNK
     Route: 048
     Dates: start: 20100921
  4. PROPRANOLOL [Concomitant]
     Dosage: 75 MG, BID
  5. BISOPROLOL [Concomitant]
     Dosage: 5 MG, QD
  6. PERINDOPRIL [Concomitant]
     Dosage: 5 MG, TID
  7. TETRAHYDROCANNABINOL [Concomitant]
     Dosage: UNK

REACTIONS (11)
  - Congestive cardiomyopathy [Recovered/Resolved with Sequelae]
  - Psychotic disorder [Unknown]
  - Cardiac failure [Unknown]
  - Obesity [Unknown]
  - Weight increased [Unknown]
  - Sleep apnoea syndrome [Unknown]
  - Exercise tolerance decreased [Unknown]
  - Dyspnoea [Unknown]
  - Tachycardia [Unknown]
  - Fatigue [Unknown]
  - Antipsychotic drug level above therapeutic [Recovered/Resolved]
